FAERS Safety Report 23948292 (Version 1)
Quarter: 2024Q2

REPORT INFORMATION
  Report Type: Spontaneous
  Country: TR (occurrence: TR)
  Receive Date: 20240607
  Receipt Date: 20240607
  Transmission Date: 20240717
  Serious: Yes (Other)
  Sender: FDA-Public Use
  Company Number: TR-002147023-NVSC2024TR116311

PATIENT
  Age: 78 Year
  Sex: Female

DRUGS (1)
  1. LUCENTIS [Suspect]
     Active Substance: RANIBIZUMAB
     Indication: Age-related macular degeneration
     Dosage: UNK (FOR 7 YEARS FOR AN EYE AND 1 YEAR FOR ANOTHER EYE)
     Route: 065

REACTIONS (6)
  - Blindness [Not Recovered/Not Resolved]
  - Eye irritation [Unknown]
  - Visual impairment [Not Recovered/Not Resolved]
  - Vitreous floaters [Recovered/Resolved]
  - Corneal scar [Unknown]
  - Off label use [Unknown]

NARRATIVE: CASE EVENT DATE: 20240307
